FAERS Safety Report 16859304 (Version 3)
Quarter: 2020Q1

REPORT INFORMATION
  Report Type: Spontaneous
  Country: FR (occurrence: FR)
  Receive Date: 20190927
  Receipt Date: 20200127
  Transmission Date: 20200409
  Serious: Yes (Hospitalization)
  Sender: FDA-Public Use
  Company Number: FR-PFIZER INC-2019405218

PATIENT
  Age: 49 Year
  Sex: Female

DRUGS (6)
  1. METHYLPHENIDATE. [Interacting]
     Active Substance: METHYLPHENIDATE
     Indication: NARCOLEPSY
     Dosage: 40 MG, DAILY (CUMULATIVE EXPOSURE: 1080 DAYS; CUMULATIVE DOSE: 43 G)
     Dates: start: 201505, end: 20180428
  2. PITOLISANT [Interacting]
     Active Substance: PITOLISANT
     Indication: CATAPLEXY
  3. VENLAFAXINE HCL [Suspect]
     Active Substance: VENLAFAXINE HYDROCHLORIDE
     Indication: NARCOLEPSY
     Dosage: 150 MG, DAILY
     Dates: start: 201505
  4. PITOLISANT [Interacting]
     Active Substance: PITOLISANT
     Indication: NARCOLEPSY
     Dosage: 18 MG, DAILY (DAY 960)
     Dates: start: 201709
  5. METHYLPHENIDATE. [Interacting]
     Active Substance: METHYLPHENIDATE
     Indication: CATAPLEXY
  6. VENLAFAXINE HCL [Interacting]
     Active Substance: VENLAFAXINE HYDROCHLORIDE
     Indication: CATAPLEXY

REACTIONS (2)
  - Splenic infarction [Recovering/Resolving]
  - Drug interaction [Recovering/Resolving]

NARRATIVE: CASE EVENT DATE: 20180428
